FAERS Safety Report 7480749-7 (Version None)
Quarter: 2011Q2

REPORT INFORMATION
  Report Type: 
  Country: None (occurrence: None)
  Receive Date: 20110506
  Receipt Date: 20110420
  Transmission Date: 20111010
  Serious: Yes (Other)
  Sender: FDA-Public Use
  Company Number: 2011040091

PATIENT
  Sex: Male

DRUGS (2)
  1. WARFARIN SODIUM [Concomitant]
  2. DIPENTUM [Suspect]

REACTIONS (2)
  - ADVERSE EVENT [None]
  - ATRIAL FIBRILLATION [None]
